FAERS Safety Report 6784540-6 (Version None)
Quarter: 2010Q2

REPORT INFORMATION
  Report Type: 
  Country: None (occurrence: None)
  Receive Date: 20100622
  Receipt Date: 20100610
  Transmission Date: 20101027
  Serious: Yes (Hospitalization)
  Sender: FDA-Public Use
  Company Number: US-ROCHE-650280

PATIENT
  Sex: Male
  Weight: 140 kg

DRUGS (20)
  1. MYCOPHENOLATE MOFETIL [Suspect]
     Route: 048
     Dates: start: 20080925, end: 20081120
  2. MYCOPHENOLATE MOFETIL [Suspect]
     Route: 048
     Dates: start: 20081122, end: 20081122
  3. MYCOPHENOLATE MOFETIL [Suspect]
     Route: 048
     Dates: start: 20081123, end: 20081124
  4. MYCOPHENOLATE MOFETIL [Suspect]
     Route: 048
     Dates: start: 20081125, end: 20090121
  5. MYCOPHENOLATE MOFETIL [Suspect]
     Route: 048
     Dates: start: 20090124, end: 20090124
  6. CP-690550 [Suspect]
     Indication: KIDNEY TRANSPLANT REJECTION
     Route: 048
     Dates: start: 20080923, end: 20090218
  7. VALCYTE [Concomitant]
     Dosage: AT BED TIME
     Dates: start: 20081002, end: 20081122
  8. VALCYTE [Concomitant]
     Dates: start: 20081123, end: 20081124
  9. VALCYTE [Concomitant]
     Dates: start: 20081125
  10. DILTIAZEM [Concomitant]
     Dates: start: 20081002
  11. COLACE [Concomitant]
     Dates: start: 20081002
  12. FOLIC ACID [Concomitant]
     Dates: start: 20081002
  13. VITAMIN TAB [Concomitant]
     Dates: start: 20081002
  14. PRILOSEC [Concomitant]
     Dates: start: 20081002
  15. ZOCOR [Concomitant]
     Dates: start: 20081002
  16. VICODIN [Concomitant]
     Dates: start: 20081002
  17. METOPROLOL TARTRATE [Concomitant]
     Dates: start: 20081002
  18. NAPROVITE [Concomitant]
     Dates: start: 20081002
  19. NEPHRO-VITE [Concomitant]
     Route: 048
     Dates: start: 20081002
  20. BACTRIM [Concomitant]
     Dosage: DAILY
     Dates: start: 20081002

REACTIONS (4)
  - HAEMOGLOBIN DECREASED [None]
  - KIDNEY TRANSPLANT REJECTION [None]
  - NEUTROPENIA [None]
  - THROMBOCYTOPENIA [None]
